FAERS Safety Report 24296715 (Version 1)
Quarter: 2024Q3

REPORT INFORMATION
  Report Type: Spontaneous
  Country: US (occurrence: US)
  Receive Date: 20240909
  Receipt Date: 20240909
  Transmission Date: 20241016
  Serious: Yes (Hospitalization)
  Sender: SANDOZ
  Company Number: US-002147023-NVSC2024US103679

PATIENT
  Age: 33 Year
  Sex: Male
  Weight: 82.96 kg

DRUGS (6)
  1. CYCLOPHOSPHAMIDE [Suspect]
     Active Substance: CYCLOPHOSPHAMIDE
     Indication: Lymphodepletion
     Dosage: 1440 MG, QD
     Route: 065
     Dates: start: 20210107, end: 20210109
  2. FLUDARABINE [Suspect]
     Active Substance: FLUDARABINE PHOSPHATE
     Indication: Lymphodepletion
     Dosage: 153 MG, QD
     Route: 065
     Dates: start: 20210107, end: 20210109
  3. MESNA [Suspect]
     Active Substance: MESNA
     Indication: B-cell lymphoma refractory
     Dosage: 734 MG
     Route: 041
     Dates: start: 20211015
  4. ACYCLOVIR [Concomitant]
     Active Substance: ACYCLOVIR
     Indication: Infection prophylaxis
     Dosage: UNK
     Route: 065
     Dates: start: 20210111
  5. MINERALS\VITAMINS [Concomitant]
     Active Substance: MINERALS\VITAMINS
     Indication: General physical condition
     Dosage: UNK
     Route: 065
  6. OBINUTUZUMAB [Concomitant]
     Active Substance: OBINUTUZUMAB
     Indication: Product used for unknown indication
     Dosage: UNK
     Route: 065
     Dates: start: 20210603

REACTIONS (2)
  - Rhinovirus infection [Recovered/Resolved with Sequelae]
  - Clostridium difficile colitis [Recovered/Resolved]

NARRATIVE: CASE EVENT DATE: 20211117
